FAERS Safety Report 8324406-3 (Version None)
Quarter: 2012Q2

REPORT INFORMATION
  Report Type: 
  Country: None (occurrence: None)
  Receive Date: 20120501
  Receipt Date: 20120424
  Transmission Date: 20120825
  Serious: Yes (Hospitalization, Other)
  Sender: FDA-Public Use
  Company Number: US-SHIRE-ALL1-2012-02096

PATIENT
  Sex: Female
  Weight: 81.633 kg

DRUGS (7)
  1. VIVELLE-DOT [Concomitant]
     Indication: MENOPAUSAL SYMPTOMS
     Dosage: 0.05 MG, OTHER (TWICE WEEKLY)
     Route: 062
  2. VALTREX [Concomitant]
     Indication: ANOGENITAL WARTS
     Dosage: 500 MG, AS REQ'D (DAILY)
     Route: 048
  3. LIALDA [Suspect]
     Indication: CROHN'S DISEASE
     Dosage: 1.2 G, 2X/DAY:BID
     Route: 048
     Dates: start: 20050101
  4. PRILOSEC [Concomitant]
     Indication: GASTROOESOPHAGEAL REFLUX DISEASE
     Dosage: 40 MG, 1X/DAY:QD
     Route: 048
     Dates: start: 19950101
  5. SYNTHROID [Concomitant]
     Indication: THYROID DISORDER
     Dosage: 0.075 MG, 1X/DAY:QD
     Route: 048
     Dates: start: 19920101
  6. NASONEX [Concomitant]
     Indication: SEASONAL ALLERGY
     Dosage: 2 SPRAYS EACH NOSTRIL, UNKNOWN
     Route: 045
  7. ASTEPRO [Concomitant]
     Indication: SEASONAL ALLERGY
     Dosage: (0.15%, 2 SPRAYS EACH NOTRIL) UNKNOWN
     Route: 045
     Dates: start: 20120401

REACTIONS (5)
  - OFF LABEL USE [None]
  - INAPPROPRIATE SCHEDULE OF DRUG ADMINISTRATION [None]
  - CATARACT [None]
  - SLEEP APNOEA SYNDROME [None]
  - HYPERTROPHIC CARDIOMYOPATHY [None]
